FAERS Safety Report 13687225 (Version 1)
Quarter: 2017Q2

REPORT INFORMATION
  Report Type: Spontaneous
  Country: US (occurrence: US)
  Receive Date: 20170623
  Receipt Date: 20170623
  Transmission Date: 20170830
  Serious: No
  Sender: FDA-Public Use
  Company Number: US-009507513-1706USA008974

PATIENT
  Weight: 45.03 kg

DRUGS (1)
  1. TICE BCG [Suspect]
     Active Substance: BACILLUS CALMETTE-GUERIN SUBSTRAIN TICE LIVE ANTIGEN
     Dosage: 18 TREATMENTS
     Dates: start: 20110303, end: 20131114

REACTIONS (4)
  - Weight decreased [Unknown]
  - Adverse event [Unknown]
  - Abnormal faeces [Not Recovered/Not Resolved]
  - Fatigue [Unknown]

NARRATIVE: CASE EVENT DATE: 20120814
